FAERS Safety Report 9979940 (Version 1)
Quarter: 2014Q1

REPORT INFORMATION
  Report Type: Report from Study
  Country: US (occurrence: US)
  Receive Date: 20140306
  Receipt Date: 20140306
  Transmission Date: 20141002
  Serious: No
  Sender: FDA-Public Use
  Company Number: US-ABBVIE-13P-163-1172461-00

PATIENT
  Age: 67 Year
  Sex: Female

DRUGS (10)
  1. HUMIRA [Suspect]
     Indication: CROHN^S DISEASE
     Dates: start: 20131022
  2. PENTASA [Concomitant]
     Indication: PRODUCT USED FOR UNKNOWN INDICATION
  3. UNKNOWN NASAL SPRAY [Concomitant]
     Indication: OSTEOPOROSIS
     Dosage: 1 SPRAY DAILY WHILE ALTERNATING NOSTRILS
     Route: 045
  4. HCTZ [Concomitant]
     Indication: PRODUCT USED FOR UNKNOWN INDICATION
  5. RANITIDINE [Concomitant]
     Indication: PRODUCT USED FOR UNKNOWN INDICATION
  6. AMBIEN [Concomitant]
     Indication: PRODUCT USED FOR UNKNOWN INDICATION
     Dosage: AT BEDTIME
  7. AMITRIPTYLINE [Concomitant]
     Indication: PRODUCT USED FOR UNKNOWN INDICATION
  8. LYRICA [Concomitant]
     Indication: PRODUCT USED FOR UNKNOWN INDICATION
  9. ENTOCORT [Concomitant]
     Indication: PRODUCT USED FOR UNKNOWN INDICATION
     Dosage: ALTERNATING WITH 2 TABS
  10. ENTOCORT [Concomitant]
     Dosage: ALTERNATING WITH 1 TAB

REACTIONS (5)
  - Nervousness [Recovered/Resolved]
  - Crohn^s disease [Recovering/Resolving]
  - Tremor [Recovered/Resolved]
  - Pallor [Recovered/Resolved]
  - Dizziness [Recovered/Resolved]
